FAERS Safety Report 15939870 (Version 1)
Quarter: 2019Q1

REPORT INFORMATION
  Report Type: Spontaneous
  Country: JP (occurrence: JP)
  Receive Date: 20190208
  Receipt Date: 20190208
  Transmission Date: 20190417
  Serious: Yes (Other)
  Sender: FDA-Public Use
  Company Number: JP-PFIZER INC-2019054411

PATIENT
  Age: 78 Year
  Sex: Male

DRUGS (9)
  1. LEUCOVORIN [CALCIUM FOLINATE] [Concomitant]
     Active Substance: LEUCOVORIN
  2. CAPOX [CAPECITABINE;OXALIPLATIN] [Concomitant]
     Indication: CHEMOTHERAPY
     Dosage: UNK, CYCLIC (14 DAYS OF ORAL CAPECITABINE, 1 DAY OF OXIZALIPLATIN (CAPOX), OF 33 CYCLES OF CAPOX
  3. 5-FU [FLUOROURACIL] [Concomitant]
     Active Substance: FLUOROURACIL
     Indication: CHEMOTHERAPY
     Dosage: UNK (INFUSION, PREOPERATIVE CRT)
  4. IRINOTECAN HCL [Suspect]
     Active Substance: IRINOTECAN HYDROCHLORIDE
     Indication: CHEMOTHERAPY
     Dosage: UNK UNK, CYCLIC
  5. BEVACIZUMAB. [Suspect]
     Active Substance: BEVACIZUMAB
     Indication: CHEMOTHERAPY
     Dosage: 7.5 MG/KG, CYCLIC (ON DAY 1 FOR 1 CYCLE, 26 DOSES, 23 CYCLES)
     Route: 042
  6. CAPOX [CAPECITABINE;OXALIPLATIN] [Concomitant]
     Indication: RECTAL CANCER
  7. XELIRI [Concomitant]
     Dosage: UNK
  8. 5-FU [FLUOROURACIL] [Concomitant]
     Active Substance: FLUOROURACIL
     Dosage: UNK (ORAL, POSTOPERATIVE COURSE)
     Route: 048
  9. XELIRI [Concomitant]
     Indication: CHEMOTHERAPY
     Dosage: UNK, CYCLIC (14 DAYS OF ORAL CAPECITABINE, 1 DAY OF IRINOTECAN (XELIRI)

REACTIONS (2)
  - Anastomotic leak [Recovering/Resolving]
  - Urethral fistula [Recovering/Resolving]
